FAERS Safety Report 12981969 (Version 1)
Quarter: 2016Q4

REPORT INFORMATION
  Report Type: Spontaneous
  Country: US (occurrence: US)
  Receive Date: 20161129
  Receipt Date: 20161129
  Transmission Date: 20170207
  Serious: Yes (Other)
  Sender: FDA-Public Use
  Company Number: US-TEVA-715399ACC

PATIENT
  Age: 18 Year
  Sex: Female
  Weight: 78.54 kg

DRUGS (1)
  1. PARAGARD T 380A [Suspect]
     Active Substance: COPPER
     Indication: CONTRACEPTION
     Dates: start: 20160920, end: 20161101

REACTIONS (5)
  - Urinary tract infection [Unknown]
  - Vaginal infection [Unknown]
  - Device dislocation [Recovered/Resolved]
  - Pain [Unknown]
  - Vaginal haemorrhage [Unknown]

NARRATIVE: CASE EVENT DATE: 20161012
